FAERS Safety Report 23571201 (Version 1)
Quarter: 2024Q1

REPORT INFORMATION
  Report Type: Spontaneous
  Country: FR (occurrence: FR)
  Receive Date: 20240227
  Receipt Date: 20240227
  Transmission Date: 20240410
  Serious: Yes (Hospitalization)
  Sender: FDA-Public Use
  Company Number: None

PATIENT
  Age: 68 Year
  Sex: Male
  Weight: 118 kg

DRUGS (2)
  1. MOXIFLOXACIN [Suspect]
     Active Substance: MOXIFLOXACIN
     Indication: Skin infection
     Dosage: 400 MILLIGRAM, QD
     Route: 048
     Dates: start: 20231115, end: 20231130
  2. RIFAMPIN [Suspect]
     Active Substance: RIFAMPIN
     Indication: Skin infection
     Dosage: 900 MILLIGRAM, QD (450 MG MORNING AND EVENING)
     Route: 048
     Dates: start: 20231115, end: 20231130

REACTIONS (4)
  - Obstructive airways disorder [Recovered/Resolved]
  - Respiratory distress [Recovered/Resolved]
  - Hypercapnia [Recovered/Resolved]
  - Eosinophilia [Recovered/Resolved]

NARRATIVE: CASE EVENT DATE: 20231116
